FAERS Safety Report 12276615 (Version 3)
Quarter: 2016Q2

REPORT INFORMATION
  Report Type: Spontaneous
  Country: US (occurrence: US)
  Receive Date: 20160418
  Receipt Date: 20160610
  Transmission Date: 20160815
  Serious: Yes (Hospitalization, Other)
  Sender: FDA-Public Use
  Company Number: US-GLAXOSMITHKLINE-US2016048849

PATIENT
  Age: 67 Year
  Sex: Male
  Weight: 108.84 kg

DRUGS (1)
  1. MALARONE [Suspect]
     Active Substance: ATOVAQUONE\PROGUANIL HYDROCHLORIDE
     Indication: MALARIA PROPHYLAXIS
     Dosage: 250/100 MG 1D
     Dates: start: 201601, end: 20160311

REACTIONS (25)
  - Hypophagia [Recovering/Resolving]
  - Lethargy [Unknown]
  - Emergency care examination [Unknown]
  - Electrolyte depletion [Recovered/Resolved]
  - Haemoglobin decreased [Recovering/Resolving]
  - Weight decreased [Recovering/Resolving]
  - Electrolyte imbalance [Recovered/Resolved]
  - Hypomagnesaemia [Recovered/Resolved]
  - Hypokalaemia [Recovered/Resolved]
  - Dehydration [Recovering/Resolving]
  - Malnutrition [Unknown]
  - Microcytic anaemia [Unknown]
  - Asthenia [Recovering/Resolving]
  - Starvation [Unknown]
  - Decreased appetite [Recovering/Resolving]
  - Vomiting [Recovered/Resolved]
  - Renal disorder [Not Recovered/Not Resolved]
  - Tetany [Recovered/Resolved]
  - Hypocalcaemia [Recovered/Resolved]
  - Blood creatine phosphokinase increased [Unknown]
  - Chest discomfort [Unknown]
  - Diarrhoea [Recovered/Resolved]
  - Malaise [Unknown]
  - Anaemia [Recovering/Resolving]
  - Anaemia macrocytic [Unknown]

NARRATIVE: CASE EVENT DATE: 20160402
